FAERS Safety Report 25764569 (Version 1)
Quarter: 2025Q3

REPORT INFORMATION
  Report Type: Spontaneous
  Country: US (occurrence: US)
  Receive Date: 20250905
  Receipt Date: 20250905
  Transmission Date: 20251020
  Serious: No
  Sender: DOMPE FARMACEUTICI
  Company Number: US-FARMAPROD-202501-0107

PATIENT
  Sex: Female

DRUGS (8)
  1. OXERVATE [Suspect]
     Active Substance: CENEGERMIN-BKBJ
     Indication: Neurotrophic keratopathy
     Route: 047
     Dates: start: 20241223
  2. IVIZIA [Concomitant]
     Active Substance: POVIDONE
  3. SIMVASTATIN [Concomitant]
     Active Substance: SIMVASTATIN
  4. PREGABALIN [Concomitant]
     Active Substance: PREGABALIN
  5. VALACYCLOVIR [Concomitant]
     Active Substance: VALACYCLOVIR HYDROCHLORIDE
  6. OFLOXACIN [Concomitant]
     Active Substance: OFLOXACIN
  7. CYCLOBENZAPRINE HYDROCHLORIDE [Concomitant]
     Active Substance: CYCLOBENZAPRINE HYDROCHLORIDE
  8. CLONAZEPAM [Concomitant]
     Active Substance: CLONAZEPAM

REACTIONS (2)
  - Vision blurred [Unknown]
  - Lacrimation increased [Unknown]
